FAERS Safety Report 8805972 (Version 1)
Quarter: 2012Q4

REPORT INFORMATION
  Report Type: Spontaneous
  Country: GB (occurrence: None)
  Receive Date: 20120918
  Receipt Date: 20120918
  Transmission Date: 20130627
  Serious: Yes (Hospitalization, Other)
  Sender: FDA-Public Use
  Company Number: FK201202649

PATIENT
  Age: 69 Year
  Sex: Female

DRUGS (12)
  1. FUROSEMIDE (MANUFACTURER UNKNOWN) (FUROSEMIDE) (FUROSEMIDE) [Suspect]
  2. ASPIRIN [Suspect]
  3. CYCLIZINE [Suspect]
  4. DIAZEPAM [Suspect]
  5. FELODIPINE [Suspect]
  6. GLICLAZIDE [Suspect]
  7. HYOSCINE BUTYLBROMIDE [Suspect]
  8. ISOSORBIDE MONONITRATE [Suspect]
  9. LANSOPRAZOLE [Suspect]
  10. PAROXETINE [Suspect]
  11. SALBUTAMOL [Suspect]
     Dosage: AS NECESSARY
  12. SIMVASTATIN (SIMVASTATIN) [Suspect]
     Route: 048

REACTIONS (1)
  - Angioedema [None]
